FAERS Safety Report 13378243 (Version 3)
Quarter: 2018Q1

REPORT INFORMATION
  Report Type: Spontaneous
  Country: GB (occurrence: GB)
  Receive Date: 20170328
  Receipt Date: 20180131
  Transmission Date: 20180508
  Serious: Yes (Hospitalization, Other)
  Sender: FDA-Public Use
  Company Number: GB-MYLANLABS-2017M1016070

PATIENT
  Age: 51 Year
  Sex: Male
  Weight: 80 kg

DRUGS (1)
  1. CLOZARIL [Suspect]
     Active Substance: CLOZAPINE
     Indication: SCHIZOPHRENIA
     Dosage: UNK
     Route: 048
     Dates: start: 20121108, end: 20170304

REACTIONS (19)
  - White blood cell count decreased [Recovered/Resolved]
  - Alanine aminotransferase increased [Recovering/Resolving]
  - Neutropenic sepsis [Recovering/Resolving]
  - Blood urea increased [Not Recovered/Not Resolved]
  - Blood alkaline phosphatase increased [Unknown]
  - C-reactive protein increased [Unknown]
  - Blood sodium increased [Recovering/Resolving]
  - Blood chloride increased [Recovering/Resolving]
  - Blood bilirubin increased [Recovering/Resolving]
  - Blood albumin decreased [Unknown]
  - Glomerular filtration rate decreased [Not Recovered/Not Resolved]
  - Blood creatinine increased [Not Recovered/Not Resolved]
  - Blood calcium decreased [Not Recovered/Not Resolved]
  - Protein total decreased [Not Recovered/Not Resolved]
  - Procalcitonin increased [Unknown]
  - Subarachnoid haemorrhage [Unknown]
  - Gamma-glutamyltransferase increased [Recovering/Resolving]
  - Blood phosphorus increased [Recovering/Resolving]
  - Blood magnesium increased [Recovering/Resolving]

NARRATIVE: CASE EVENT DATE: 20170304
